FAERS Safety Report 6701547-5 (Version None)
Quarter: 2010Q2

REPORT INFORMATION
  Report Type: 
  Country: None (occurrence: None)
  Receive Date: 20100429
  Receipt Date: 20100423
  Transmission Date: 20101027
  Serious: Yes (Other)
  Sender: FDA-Public Use
  Company Number: JP-JNJFOC-20100207726

PATIENT
  Age: 61 Year
  Sex: Male
  Weight: 65 kg

DRUGS (9)
  1. ITRIZOLE [Suspect]
     Indication: PULMONARY MYCOSIS
     Route: 041
  2. ITRIZOLE [Suspect]
     Route: 041
  3. ACINON [Concomitant]
     Indication: DRUG USE FOR UNKNOWN INDICATION
     Route: 048
  4. NAPROXEN [Concomitant]
     Indication: PNEUMONIA
     Route: 048
  5. ALLEGRA [Concomitant]
     Indication: RHINITIS ALLERGIC
     Route: 048
  6. MEROPENEM [Concomitant]
     Indication: DRUG USE FOR UNKNOWN INDICATION
     Route: 041
  7. SEROQUEL [Concomitant]
     Indication: DELIRIUM
     Route: 048
  8. SEROQUEL [Concomitant]
     Route: 048
  9. DORAL [Concomitant]
     Indication: DRUG USE FOR UNKNOWN INDICATION
     Route: 048

REACTIONS (2)
  - BLOOD CREATINE PHOSPHOKINASE INCREASED [None]
  - DELIRIUM [None]
